FAERS Safety Report 7236409-0 (Version None)
Quarter: 2011Q1

REPORT INFORMATION
  Report Type: 
  Country: None (occurrence: None)
  Receive Date: 20110120
  Receipt Date: 20110117
  Transmission Date: 20110831
  Serious: Yes (Life-Threatening, Other)
  Sender: FDA-Public Use
  Company Number: GB-PFIZER INC-2010142367

PATIENT
  Age: 15 Year
  Sex: Female
  Weight: 54 kg

DRUGS (1)
  1. DEPO-PROVERA [Suspect]
     Dosage: 150 MG, UNK
     Route: 030
     Dates: start: 20101105

REACTIONS (10)
  - HEADACHE [None]
  - RASH [None]
  - FLUSHING [None]
  - HYPERSENSITIVITY [None]
  - MALAISE [None]
  - PALLOR [None]
  - PAIN IN EXTREMITY [None]
  - TACHYCARDIA [None]
  - OEDEMA PERIPHERAL [None]
  - BODY TEMPERATURE INCREASED [None]
